FAERS Safety Report 13326271 (Version 1)
Quarter: 2017Q1

REPORT INFORMATION
  Report Type: Spontaneous
  Country: US (occurrence: US)
  Receive Date: 20170311
  Receipt Date: 20170311
  Transmission Date: 20170428
  Serious: No
  Sender: FDA-Public Use
  Company Number: PHEH2017US006728

PATIENT
  Sex: Female

DRUGS (4)
  1. MEKINIST [Suspect]
     Active Substance: TRAMETINIB DIMETHYL SULFOXIDE
     Indication: RESPIRATORY TRACT NEOPLASM
     Dosage: 1 DF, QD
     Route: 048
     Dates: start: 20161104
  2. MEKINIST [Suspect]
     Active Substance: TRAMETINIB DIMETHYL SULFOXIDE
     Indication: GASTROINTESTINAL NEOPLASM
  3. TAFINLAR [Suspect]
     Active Substance: DABRAFENIB MESYLATE
     Indication: GASTROINTESTINAL NEOPLASM
  4. TAFINLAR [Suspect]
     Active Substance: DABRAFENIB MESYLATE
     Indication: RESPIRATORY TRACT NEOPLASM
     Dosage: 2 DF, BID
     Route: 048
     Dates: start: 20161104

REACTIONS (2)
  - Hyperglycaemia [Unknown]
  - Vision blurred [Unknown]
